FAERS Safety Report 5932962-5 (Version None)
Quarter: 2008Q4

REPORT INFORMATION
  Report Type: 
  Country: None (occurrence: None)
  Receive Date: 20081028
  Receipt Date: 20081027
  Transmission Date: 20090506
  Serious: Yes (Death)
  Sender: FDA-Public Use
  Company Number: US-ASTRAZENECA-2008UW23932

PATIENT
  Sex: Male

DRUGS (3)
  1. CASODEX [Suspect]
     Indication: PROSTATE CANCER
     Route: 048
     Dates: start: 20060101, end: 20080331
  2. CASODEX [Suspect]
     Route: 048
     Dates: start: 20080619
  3. LUPRON [Concomitant]

REACTIONS (1)
  - DEATH [None]
